FAERS Safety Report 7459648-2 (Version None)
Quarter: 2011Q2

REPORT INFORMATION
  Report Type: 
  Country: None (occurrence: None)
  Receive Date: 20110505
  Receipt Date: 20110503
  Transmission Date: 20111010
  Serious: Yes (Death, Other)
  Sender: FDA-Public Use
  Company Number: PHHY2006US02689

PATIENT
  Sex: Female

DRUGS (2)
  1. EXJADE [Suspect]
     Dosage: 500 MG, UNK
     Route: 048
  2. ANTIARRHYTHMICS, CLASS I AND III [Concomitant]

REACTIONS (3)
  - GASTROINTESTINAL BACTERIAL INFECTION [None]
  - DEATH [None]
  - DIARRHOEA [None]
